FAERS Safety Report 6072676-7 (Version None)
Quarter: 2009Q1

REPORT INFORMATION
  Report Type: 
  Country: None (occurrence: None)
  Receive Date: 20090210
  Receipt Date: 20090129
  Transmission Date: 20090719
  Serious: Yes (Life-Threatening, Other)
  Sender: FDA-Public Use
  Company Number: BR-PFIZER INC-2009164661

PATIENT

DRUGS (1)
  1. SERTRALINE HCL [Suspect]
     Indication: HYPERSEXUALITY
     Dosage: RAISED TO 200 MG

REACTIONS (4)
  - BALANCE DISORDER [None]
  - DRUG INEFFECTIVE [None]
  - FALL [None]
  - SUBDURAL HAEMATOMA [None]
